FAERS Safety Report 12247067 (Version 1)
Quarter: 2016Q2

REPORT INFORMATION
  Report Type: Report from Study
  Country: BR (occurrence: BR)
  Receive Date: 20160407
  Receipt Date: 20160407
  Transmission Date: 20160815
  Serious: Yes (Other)
  Sender: FDA-Public Use
  Company Number: BR-ABBVIE-16K-020-1598153-00

PATIENT
  Age: 58 Year
  Sex: Female
  Weight: 68 kg

DRUGS (6)
  1. FOLIC ACID. [Concomitant]
     Active Substance: FOLIC ACID
     Indication: IMMUNODEFICIENCY
  2. METHOTREXATE [Concomitant]
     Active Substance: METHOTREXATE
     Indication: ARTHRITIS
     Route: 048
  3. PREDNISONE. [Concomitant]
     Active Substance: PREDNISONE
     Indication: ARTHRALGIA
     Route: 048
  4. HUMIRA [Suspect]
     Active Substance: ADALIMUMAB
     Indication: RHEUMATOID ARTHRITIS
     Route: 058
     Dates: start: 20141203, end: 201602
  5. FOLIC ACID. [Concomitant]
     Active Substance: FOLIC ACID
     Indication: LIVER DISORDER
     Route: 048
  6. FOLIC ACID. [Concomitant]
     Active Substance: FOLIC ACID
     Indication: PROPHYLAXIS

REACTIONS (11)
  - Fatigue [Recovering/Resolving]
  - Osteopenia [Not Recovered/Not Resolved]
  - Immunodeficiency [Recovering/Resolving]
  - Onychoclasis [Recovering/Resolving]
  - Pulpitis dental [Recovering/Resolving]
  - Hypovitaminosis [Unknown]
  - Alopecia [Recovering/Resolving]
  - Hypersensitivity [Unknown]
  - Dental cyst [Recovering/Resolving]
  - Dental necrosis [Recovering/Resolving]
  - Teeth brittle [Not Recovered/Not Resolved]

NARRATIVE: CASE EVENT DATE: 2014
